FAERS Safety Report 18533478 (Version 2)
Quarter: 2021Q1

REPORT INFORMATION
  Report Type: Report from Study
  Country: ZA (occurrence: ZA)
  Receive Date: 20201123
  Receipt Date: 20210107
  Transmission Date: 20210419
  Serious: Yes (Death)
  Sender: FDA-Public Use
  Company Number: ZA-REGENERON PHARMACEUTICALS, INC.-2020-89771

PATIENT

DRUGS (1)
  1. EYLEA [Suspect]
     Active Substance: AFLIBERCEPT
     Indication: PRODUCT USED FOR UNKNOWN INDICATION
     Dosage: 1X VIAL, UNK; TOTAL NUMBER OF DOSES AND TREATMENT EYE UNK; LAST DOSE PRIOR TO EVENT UNK
     Route: 031

REACTIONS (1)
  - Death [Fatal]
